FAERS Safety Report 8985840 (Version 1)
Quarter: 2012Q4

REPORT INFORMATION
  Report Type: 
  Country: DE (occurrence: DE)
  Receive Date: 20121226
  Receipt Date: 20121226
  Transmission Date: 20130627
  Serious: Yes (Other)
  Sender: FDA-Public Use
  Company Number: DE-ASTRAZENECA-2012SE95129

PATIENT
  Sex: Male

DRUGS (2)
  1. SYMBICORT TURBUHALER [Suspect]
     Dosage: 160/4.5 AT UNKNOWN FREQUENCY
     Route: 055
  2. SYMBICORT TURBUHALER [Suspect]
     Dosage: 160/4.5 AS REQUIRED
     Route: 055

REACTIONS (1)
  - Oral fungal infection [Not Recovered/Not Resolved]
